FAERS Safety Report 4610155-1 (Version None)
Quarter: 2005Q1

REPORT INFORMATION
  Report Type: 
  Country: None (occurrence: None)
  Receive Date: 20050316
  Receipt Date: 20050307
  Transmission Date: 20050727
  Serious: Yes (Other)
  Sender: FDA-Public Use
  Company Number: A0548762A

PATIENT
  Age: 40 Year
  Sex: Female
  Weight: 66.8 kg

DRUGS (4)
  1. TUMS LASTING EFFECTS MIXED FRUIT [Suspect]
     Indication: DYSPEPSIA
     Route: 048
     Dates: start: 20050101
  2. TUMS REGULAR TABLETS, PEPPERMINT [Suspect]
     Indication: DYSPEPSIA
     Route: 048
     Dates: start: 20050101
  3. PRENATAL VITAMINS [Concomitant]
     Indication: PREGNANCY
     Route: 048
  4. LEVOTHYROXINE [Concomitant]
     Indication: HYPOTHYROIDISM
     Route: 048

REACTIONS (2)
  - DRUG EXPOSURE DURING PREGNANCY [None]
  - GESTATIONAL DIABETES [None]
